FAERS Safety Report 26127112 (Version 1)
Quarter: 2025Q4

REPORT INFORMATION
  Report Type: Report from Study
  Country: EU (occurrence: EU)
  Receive Date: 20251205
  Receipt Date: 20251205
  Transmission Date: 20260118
  Serious: Yes (Death, Hospitalization, Other)
  Sender: TAKEDA
  Company Number: EU-JNJFOC-20251203374

PATIENT
  Age: 59 Year
  Sex: Female

DRUGS (3)
  1. BORTEZOMIB [Suspect]
     Active Substance: BORTEZOMIB
     Indication: Plasma cell myeloma
     Dosage: 24 MILLIGRAM
     Dates: start: 20250319, end: 20250430
  2. DEXAMETHASONE [Suspect]
     Active Substance: DEXAMETHASONE
     Indication: Product used for unknown indication
     Dosage: 20 MILLIGRAM
     Dates: start: 20250319, end: 20250430
  3. SELINEXOR [Suspect]
     Active Substance: SELINEXOR
     Indication: Product used for unknown indication
     Dosage: 60 MILLIGRAM
     Dates: start: 20250319, end: 20250430

REACTIONS (1)
  - Encephalitis bacterial [Fatal]

NARRATIVE: CASE EVENT DATE: 20250507
